FAERS Safety Report 7799133-1 (Version None)
Quarter: 2011Q4

REPORT INFORMATION
  Report Type: 
  Country: None (occurrence: None)
  Receive Date: 20111006
  Receipt Date: 20111003
  Transmission Date: 20120403
  Serious: Yes (Other)
  Sender: FDA-Public Use
  Company Number: HU-PFIZER INC-2011236463

PATIENT
  Age: 63 Year
  Sex: Female
  Weight: 43 kg

DRUGS (3)
  1. ATORVASTATIN CALCIUM [Suspect]
     Dosage: 20 MG, ONCE DAILY
     Dates: start: 20110501, end: 20110501
  2. XANAX [Concomitant]
     Dosage: UNK
     Dates: start: 20060101
  3. ASPIRIN [Concomitant]
     Dosage: UNK
     Dates: start: 20100101

REACTIONS (4)
  - CHOKING [None]
  - ERYTHEMA [None]
  - FLUSHING [None]
  - DYSPHAGIA [None]
